FAERS Safety Report 26094220 (Version 1)
Quarter: 2025Q4

REPORT INFORMATION
  Report Type: Spontaneous
  Country: CN (occurrence: CN)
  Receive Date: 20251126
  Receipt Date: 20251126
  Transmission Date: 20260117
  Serious: Yes (Hospitalization)
  Sender: MYLAN
  Company Number: CN-MYLANLABS-2025M1099828

PATIENT
  Age: 16 Year
  Sex: Female
  Weight: 45 kg

DRUGS (3)
  1. ZOLOFT [Suspect]
     Active Substance: SERTRALINE HYDROCHLORIDE
     Indication: Depression
     Dosage: 14 DOSAGE FORM, QD
     Dates: start: 20251104, end: 20251104
  2. OLANZAPINE [Suspect]
     Active Substance: OLANZAPINE
     Indication: Depression
     Dosage: 10 DOSAGE FORM, QD
     Dates: start: 20251104, end: 20251104
  3. TANDOSPIRONE CITRATE [Suspect]
     Active Substance: TANDOSPIRONE CITRATE
     Indication: Depression
     Dosage: 20 DOSAGE FORM, QD
     Dates: start: 20251104, end: 20251104

REACTIONS (4)
  - Blood creatine phosphokinase increased [Recovering/Resolving]
  - Fall [Recovering/Resolving]
  - Somnolence [Recovering/Resolving]
  - Sinus tachycardia [Recovering/Resolving]

NARRATIVE: CASE EVENT DATE: 20251104
